FAERS Safety Report 5289171-5 (Version None)
Quarter: 2007Q1

REPORT INFORMATION
  Report Type: 
  Country: None (occurrence: None)
  Receive Date: 20070125
  Receipt Date: 20061020
  Transmission Date: 20070707
  Serious: No
  Sender: FDA-Public Use
  Company Number: 014

PATIENT
  Age: 13 Year
  Weight: 25 kg

DRUGS (3)
  1. INCRELEX [Suspect]
     Indication: INSULIN-LIKE GROWTH FACTOR DECREASED
     Dosage: 10 U BID
     Dates: start: 20060919
  2. ALBUTEROL [Concomitant]
  3. HISTINEX PRN [Concomitant]

REACTIONS (4)
  - CONSTIPATION [None]
  - HEADACHE [None]
  - NEPHROLITHIASIS [None]
  - SKIN SWELLING [None]
